FAERS Safety Report 8358388-5 (Version None)
Quarter: 2012Q2

REPORT INFORMATION
  Report Type: 
  Country: None (occurrence: None)
  Receive Date: 20120514
  Receipt Date: 20110512
  Transmission Date: 20120825
  Serious: No
  Sender: FDA-Public Use
  Company Number: US-ALEXION-A201100697

PATIENT
  Sex: Male

DRUGS (8)
  1. VITAMIN B-12 [Concomitant]
     Dosage: UNK, QMONTH
  2. SOLIRIS [Suspect]
     Indication: PAROXYSMAL NOCTURNAL HAEMOGLOBINURIA
     Dosage: 600 MG, QW
     Route: 042
     Dates: start: 20100618, end: 20100701
  3. SOLIRIS [Suspect]
     Dosage: 900 MG, Q2W
     Route: 042
     Dates: start: 20100716
  4. ICAR [Concomitant]
     Dosage: UNK
  5. FOLIC ACID [Concomitant]
     Dosage: UNK
  6. POTASSIUM CHLORIDE [Concomitant]
     Dosage: 20 MEQ, QD
  7. MULTI-VITAMIN [Concomitant]
     Dosage: UNK
  8. ROBAXIN [Concomitant]
     Dosage: UNK, PRN

REACTIONS (2)
  - VEIN DISORDER [None]
  - INJECTION SITE PAIN [None]
